FAERS Safety Report 16402556 (Version 2)
Quarter: 2019Q2

REPORT INFORMATION
  Report Type: Spontaneous
  Country: US (occurrence: US)
  Receive Date: 20190607
  Receipt Date: 20190613
  Transmission Date: 20190711
  Serious: No
  Sender: FDA-Public Use
  Company Number: US-PHARMING-PHAUS2019000327

PATIENT

DRUGS (15)
  1. RUCONEST [Suspect]
     Active Substance: HUMAN C1-ESTERASE INHIBITOR
     Dosage: 4200 IU, TWICE WEEKLY
     Route: 042
     Dates: start: 20190108
  2. ACZONE [Concomitant]
     Active Substance: DAPSONE
  3. KETOTIFEN FUMARATE. [Concomitant]
     Active Substance: KETOTIFEN FUMARATE
  4. FISH OIL [Concomitant]
     Active Substance: FISH OIL
  5. VITAMIN D3 [Concomitant]
     Active Substance: CHOLECALCIFEROL
  6. VYVANSE [Concomitant]
     Active Substance: LISDEXAMFETAMINE DIMESYLATE
  7. PROBIOTICA [Concomitant]
     Active Substance: PROBIOTICS NOS
  8. XTAMPZA [Concomitant]
     Active Substance: OXYCODONE
  9. LYRICA [Concomitant]
     Active Substance: PREGABALIN
  10. METAMUCIL [Concomitant]
     Active Substance: PLANTAGO SEED
  11. EPINEPHRINE. [Concomitant]
     Active Substance: EPINEPHRINE
  12. MULTIVITAMIN [Concomitant]
     Active Substance: VITAMINS
  13. RUCONEST [Suspect]
     Active Substance: HUMAN C1-ESTERASE INHIBITOR
     Indication: HEREDITARY ANGIOEDEMA
     Dosage: 4100 IU, AS NEEDED
     Route: 042
     Dates: start: 20190108
  14. METHOCARBAMOL. [Concomitant]
     Active Substance: METHOCARBAMOL
  15. OCTAGAM IMMUNE GLOBULIN (HUMAN) [Concomitant]
     Active Substance: HUMAN IMMUNOGLOBULIN G

REACTIONS (1)
  - Hereditary angioedema [Unknown]

NARRATIVE: CASE EVENT DATE: 2019
